FAERS Safety Report 24024174 (Version 5)
Quarter: 2024Q3

REPORT INFORMATION
  Report Type: Report from Study
  Country: CN (occurrence: CN)
  Receive Date: 20240627
  Receipt Date: 20240710
  Transmission Date: 20241017
  Serious: No
  Sender: ROCHE
  Company Number: CN-ROCHE-3222364

PATIENT
  Age: 71 Year
  Sex: Male
  Weight: 83.0 kg

DRUGS (12)
  1. ALECTINIB [Suspect]
     Active Substance: ALECTINIB
     Indication: Non-small cell lung cancer metastatic
     Route: 048
     Dates: start: 20211202
  2. ALECTINIB [Suspect]
     Active Substance: ALECTINIB
     Route: 048
     Dates: start: 20210617
  3. HERBALS\DIAMMONIUM GLYCYRRHIZINATE [Concomitant]
     Active Substance: HERBALS\DIAMMONIUM GLYCYRRHIZINATE
     Route: 048
     Dates: start: 20220504, end: 20220602
  4. AZELNIDIPINE [Concomitant]
     Active Substance: AZELNIDIPINE
     Indication: Hypertension
     Dosage: 0.5 TABLET
     Route: 048
     Dates: start: 201907, end: 20230404
  5. HYDROCHLOROTHIAZIDE\IRBESARTAN [Concomitant]
     Active Substance: HYDROCHLOROTHIAZIDE\IRBESARTAN
     Indication: Hypertension
     Dosage: 0.5 TABLET
     Route: 048
     Dates: start: 20221025
  6. HYDROTALCITE [Concomitant]
     Active Substance: HYDROTALCITE
     Route: 048
     Dates: start: 20220115, end: 20220123
  7. CALCIUM CARBONATE\CHOLECALCIFEROL [Concomitant]
     Active Substance: CALCIUM CARBONATE\CHOLECALCIFEROL
     Dosage: DOSE- 1 TABLET
     Route: 048
     Dates: start: 20220115, end: 20220309
  8. QUICK ACTING HEART RELIEVER [Concomitant]
     Route: 048
     Dates: start: 20220214, end: 20220214
  9. HERBALS\DIAMMONIUM GLYCYRRHIZINATE [Concomitant]
     Active Substance: HERBALS\DIAMMONIUM GLYCYRRHIZINATE
     Route: 048
     Dates: start: 20220504, end: 20220602
  10. UBIDECARENONE [Concomitant]
     Active Substance: UBIDECARENONE
     Route: 048
     Dates: start: 20220506
  11. IBUPROFEN SUSTAINED RELEASE [Concomitant]
     Route: 048
     Dates: start: 20221226, end: 20221228
  12. AMLODIPINE BESYLATE [Concomitant]
     Active Substance: AMLODIPINE BESYLATE
     Indication: Hypertension
     Route: 048
     Dates: start: 20230405, end: 20240108

REACTIONS (2)
  - Aspartate aminotransferase increased [Recovered/Resolved]
  - Atrioventricular block first degree [Recovering/Resolving]

NARRATIVE: CASE EVENT DATE: 20220114
